FAERS Safety Report 9635169 (Version 1)
Quarter: 2013Q4

REPORT INFORMATION
  Report Type: Spontaneous
  Country: CN (occurrence: None)
  Receive Date: 20131017
  Receipt Date: 20131017
  Transmission Date: 20140711
  Serious: Yes (Other)
  Sender: FDA-Public Use
  Company Number: FK201304575

PATIENT
  Age: 41 Year
  Sex: Male

DRUGS (1)
  1. VALPROATE (MANUFACTURER UNKNOWN) (VALPROATE SODIUM) (VALPROATE SODIUM) [Suspect]
     Indication: CONVULSION PROPHYLAXIS
     Dosage: 1 IN 1 D

REACTIONS (2)
  - Haemorrhage intracranial [None]
  - Hypofibrinogenaemia [None]
